FAERS Safety Report 6217361-3 (Version None)
Quarter: 2009Q2

REPORT INFORMATION
  Report Type: 
  Country: None (occurrence: None)
  Receive Date: 20090608
  Receipt Date: 20080811
  Transmission Date: 20091009
  Serious: No
  Sender: FDA-Public Use
  Company Number: A0742202A

PATIENT
  Age: 31 Year
  Sex: Male

DRUGS (2)
  1. WELLBUTRIN XL [Suspect]
     Indication: ANGER
     Dosage: 150MG PER DAY
     Route: 048
     Dates: start: 20080730
  2. MINOCYCLINE HCL [Concomitant]

REACTIONS (1)
  - INSOMNIA [None]
